FAERS Safety Report 9571394 (Version 1)
Quarter: 2013Q1

REPORT INFORMATION
  Report Type: Spontaneous
  Country: US (occurrence: None)
  Receive Date: 20120524
  Receipt Date: 20120524
  Transmission Date: 20140127
  Serious: Yes (Other)
  Sender: FDA-Public Use
  Company Number: PHHY2012US016381

PATIENT
  Age: 57 Year
  Sex: Female

DRUGS (1)
  1. EXFORGE HCT [Suspect]
     Dosage: 1 DF (160 MG VAL/5 MG AMLO/25 MG HYDRO)

REACTIONS (1)
  - Blood pressure increased [None]
